FAERS Safety Report 5997106-2 (Version None)
Quarter: 2008Q4

REPORT INFORMATION
  Report Type: 
  Country: None (occurrence: None)
  Receive Date: 20081212
  Receipt Date: 20081103
  Transmission Date: 20090506
  Serious: No
  Sender: FDA-Public Use
  Company Number: US-ABBOTT-08P-163-0485446-00

PATIENT
  Sex: Female
  Weight: 61.29 kg

DRUGS (6)
  1. HUMIRA [Suspect]
     Indication: SPINAL OSTEOARTHRITIS
     Route: 058
     Dates: start: 20081002
  2. NARCO [Concomitant]
     Indication: PAIN
     Dosage: 3-4 TIMES A DAY
     Route: 048
  3. MORPHINE SULFATE [Concomitant]
     Indication: PAIN
     Route: 048
  4. PREDNISONE TAB [Concomitant]
     Indication: DRUG USE FOR UNKNOWN INDICATION
     Route: 048
  5. CIMBALTA [Concomitant]
     Indication: FIBROMYALGIA
     Route: 048
  6. CIMBALTA [Concomitant]
     Indication: DEPRESSION

REACTIONS (1)
  - INCORRECT DOSE ADMINISTERED [None]
